FAERS Safety Report 7524511-5 (Version None)
Quarter: 2011Q2

REPORT INFORMATION
  Report Type: 
  Country: None (occurrence: None)
  Receive Date: 20110606
  Receipt Date: 20110523
  Transmission Date: 20111010
  Serious: Yes (Hospitalization, Other)
  Sender: FDA-Public Use
  Company Number: US-BAYER-201022990NA

PATIENT
  Age: 19 Year
  Sex: Female
  Weight: 52 kg

DRUGS (5)
  1. YASMIN [Suspect]
     Dosage: UNK
     Dates: start: 20080601
  2. PROMETHAZINE [Concomitant]
     Dosage: 12.5 MG, UNK
     Route: 048
  3. YASMIN [Suspect]
     Indication: ACNE
     Route: 048
     Dates: start: 20070401
  4. MIDOL LIQUID GELS [Concomitant]
     Indication: DYSMENORRHOEA
  5. VICODIN [Concomitant]
     Route: 048

REACTIONS (13)
  - GALLBLADDER INJURY [None]
  - POST PROCEDURAL DIARRHOEA [None]
  - MULTIPLE INJURIES [None]
  - ABDOMINAL PAIN UPPER [None]
  - TRANSAMINASES INCREASED [None]
  - CHOLECYSTITIS CHRONIC [None]
  - NAUSEA [None]
  - VOMITING [None]
  - PROCEDURAL PAIN [None]
  - CHOLECYSTITIS ACUTE [None]
  - DEHYDRATION [None]
  - CHOLELITHIASIS [None]
  - BLOOD BILIRUBIN INCREASED [None]
